FAERS Safety Report 6697783-7 (Version None)
Quarter: 2010Q2

REPORT INFORMATION
  Report Type: 
  Country: None (occurrence: None)
  Receive Date: 20100423
  Receipt Date: 20100413
  Transmission Date: 20101027
  Serious: Yes (Hospitalization)
  Sender: FDA-Public Use
  Company Number: 006956

PATIENT
  Sex: Male
  Weight: 96 kg

DRUGS (8)
  1. KEPPRA [Suspect]
     Dosage: (500 MG) ; (1000 MG) ; (500 MG-0-750 MG)
     Dates: start: 20100120
  2. KEPPRA [Suspect]
     Dosage: (500 MG) ; (1000 MG) ; (500 MG-0-750 MG)
     Dates: start: 20100123
  3. LAMOTRIGINE [Suspect]
     Dates: start: 20070307, end: 20100216
  4. PREDNISOLONE [Concomitant]
  5. VIANI [Concomitant]
  6. BERODUAL [Concomitant]
  7. MUCOSOLVAN /00546002/ [Concomitant]
  8. TEBONIN /01003104/ [Concomitant]

REACTIONS (18)
  - ALTERED STATE OF CONSCIOUSNESS [None]
  - BALANCE DISORDER [None]
  - BREATH ODOUR [None]
  - BRONCHOPNEUMONIA [None]
  - CONVULSION [None]
  - DIZZINESS [None]
  - DRUG INTOLERANCE [None]
  - DYSPNOEA [None]
  - HOT FLUSH [None]
  - HYPERTENSIVE CRISIS [None]
  - KLEBSIELLA INFECTION [None]
  - LISTLESS [None]
  - MUSCULOSKELETAL STIFFNESS [None]
  - NIGHT SWEATS [None]
  - SOPOR [None]
  - STAPHYLOCOCCAL INFECTION [None]
  - STATUS EPILEPTICUS [None]
  - TACHYCARDIA [None]
